FAERS Safety Report 4491750-X (Version None)
Quarter: 2004Q4

REPORT INFORMATION
  Report Type: 
  Country: None (occurrence: None)
  Receive Date: 20041103
  Receipt Date: 20041013
  Transmission Date: 20050328
  Serious: Yes (Hospitalization)
  Sender: FDA-Public Use
  Company Number: CA-MERCK-0411CAN00037

PATIENT
  Sex: Female

DRUGS (2)
  1. VIOXX [Suspect]
     Indication: HERNIA
     Route: 048
     Dates: start: 19991206, end: 20000101
  2. VIOXX [Suspect]
     Route: 048
     Dates: start: 20001201, end: 20040801

REACTIONS (3)
  - CHEST PAIN [None]
  - DYSPEPSIA [None]
  - PALPITATIONS [None]
